FAERS Safety Report 10286755 (Version 2)
Quarter: 2014Q3

REPORT INFORMATION
  Report Type: Report from Study
  Country: AU (occurrence: AU)
  Receive Date: 20140709
  Receipt Date: 20140709
  Transmission Date: 20150326
  Serious: Yes (Hospitalization, Other)
  Sender: FDA-Public Use
  Company Number: AU-PFIZER INC-2013365294

PATIENT
  Age: 42 Year
  Sex: Male

DRUGS (1)
  1. CRIZOTINIB [Suspect]
     Active Substance: CRIZOTINIB
     Indication: NON-SMALL CELL LUNG CANCER METASTATIC
     Dosage: 250 MG, 2X/DAY
     Route: 048
     Dates: start: 201303, end: 201309

REACTIONS (11)
  - Non-small cell lung cancer metastatic [Unknown]
  - Pyrexia [Unknown]
  - Abdominal pain upper [Unknown]
  - Joint swelling [Recovered/Resolved]
  - Photopsia [Unknown]
  - Hepatic enzyme increased [Recovered/Resolved]
  - Disease progression [Unknown]
  - Diarrhoea [Recovered/Resolved]
  - Lower respiratory tract infection [Unknown]
  - Cardiac tamponade [Unknown]
  - Rash [Unknown]

NARRATIVE: CASE EVENT DATE: 2013
